FAERS Safety Report 18066608 (Version 2)
Quarter: 2020Q4

REPORT INFORMATION
  Report Type: Spontaneous
  Country: US (occurrence: US)
  Receive Date: 20200724
  Receipt Date: 20201023
  Transmission Date: 20210113
  Serious: Yes (Other)
  Sender: FDA-Public Use
  Company Number: US-GILEAD-2020-0484404

PATIENT
  Age: 34 Year
  Sex: Male
  Weight: 124.72 kg

DRUGS (62)
  1. AZELASTINE. [Concomitant]
     Active Substance: AZELASTINE HYDROCHLORIDE
  2. CHOLESTYRAMINE. [Concomitant]
     Active Substance: CHOLESTYRAMINE
  3. CITRIC ACID [Concomitant]
     Active Substance: CITRIC ACID MONOHYDRATE
  4. CLARITIN-D NOS [Concomitant]
     Active Substance: LORATADINE\PSEUDOEPHEDRINE SULFATE
  5. FAMCICLOVIR. [Concomitant]
     Active Substance: FAMCICLOVIR
  6. FEXOFENADINE [Concomitant]
     Active Substance: FEXOFENADINE HYDROCHLORIDE
  7. FLUCONAZOLE. [Concomitant]
     Active Substance: FLUCONAZOLE
  8. RANITIDINE. [Concomitant]
     Active Substance: RANITIDINE
  9. ACYCLOVIR ABBOTT VIAL [Concomitant]
  10. CLOBETASOL [Concomitant]
     Active Substance: CLOBETASOL
  11. FAMOTIDINE. [Concomitant]
     Active Substance: FAMOTIDINE
  12. ONDANSETRON [Concomitant]
     Active Substance: ONDANSETRON
  13. PREZISTA [Concomitant]
     Active Substance: DARUNAVIR ETHANOLATE
  14. STAHIST AD [Concomitant]
     Active Substance: CHLORCYCLIZINE HYDROCHLORIDE\PSEUDOEPHEDRINE HYDROCHLORIDE
  15. VIAGRA [Concomitant]
     Active Substance: SILDENAFIL CITRATE
  16. VITAMIN D 2000 [Concomitant]
     Active Substance: VITAMIN D NOS
  17. DICLOFENAC [Concomitant]
     Active Substance: DICLOFENAC
  18. FLUVIRIN A [Concomitant]
  19. HYDROCODONE BITARTRATE AND ACETAMINOPHEN [Concomitant]
     Active Substance: ACETAMINOPHEN\HYDROCODONE BITARTRATE
  20. LEVOFLOXACIN. [Concomitant]
     Active Substance: LEVOFLOXACIN
  21. LOPERAMIDE [Concomitant]
     Active Substance: LOPERAMIDE
  22. MEGACE [Concomitant]
     Active Substance: MEGESTROL ACETATE
  23. OMEPRAZOLE. [Concomitant]
     Active Substance: OMEPRAZOLE
  24. ORABASE [BENZOCAINE] [Concomitant]
  25. OXYCODONE [Concomitant]
     Active Substance: OXYCODONE
  26. TRIAMCINOLONE [Concomitant]
     Active Substance: TRIAMCINOLONE
  27. DIAZEPAM. [Concomitant]
     Active Substance: DIAZEPAM
  28. DOXYCYCLINE. [Concomitant]
     Active Substance: DOXYCYCLINE
  29. DYMISTA [Concomitant]
     Active Substance: AZELASTINE HYDROCHLORIDE\FLUTICASONE PROPIONATE
  30. MELOXICAM. [Concomitant]
     Active Substance: MELOXICAM
  31. METRONIDAZOLE. [Concomitant]
     Active Substance: METRONIDAZOLE
  32. PREDNISONE. [Concomitant]
     Active Substance: PREDNISONE
  33. STENDRA [Concomitant]
     Active Substance: AVANAFIL
  34. OXYCONTIN [Concomitant]
     Active Substance: OXYCODONE HYDROCHLORIDE
  35. TRUVADA [Suspect]
     Active Substance: EMTRICITABINE\TENOFOVIR DISOPROXIL FUMARATE
     Indication: HIV INFECTION
     Dosage: UNK
     Route: 048
     Dates: start: 20120426, end: 2017
  36. CIALIS [Concomitant]
     Active Substance: TADALAFIL
  37. CLINDAMYCIN. [Concomitant]
     Active Substance: CLINDAMYCIN
  38. FLORANEX [Concomitant]
     Active Substance: LACTOBACILLUS ACIDOPHILUS\LACTOBACILLUS DELBRUECKII SUBSP. BULGARICUS
  39. KETOROLAC [Concomitant]
     Active Substance: KETOROLAC TROMETHAMINE
  40. METHYLPREDNISOLONE. [Concomitant]
     Active Substance: METHYLPREDNISOLONE
  41. PROVENTIL HFA [Concomitant]
     Active Substance: ALBUTEROL SULFATE
  42. SULFAMETHOXAZOLE AND TRIMETHOPRIM [Concomitant]
     Active Substance: SULFAMETHOXAZOLE\TRIMETHOPRIM
  43. TRAMADOL. [Concomitant]
     Active Substance: TRAMADOL
  44. DAPSONE. [Concomitant]
     Active Substance: DAPSONE
  45. MONTELUKAST [Concomitant]
     Active Substance: MONTELUKAST SODIUM
  46. PNEUMOVAX 23 [Concomitant]
     Active Substance: PNEUMOCOCCAL VACCINE, POLYVALENT 23
  47. VORICONAZOLE. [Concomitant]
     Active Substance: VORICONAZOLE
  48. BREO ELLIPTA [Concomitant]
     Active Substance: FLUTICASONE FUROATE\VILANTEROL TRIFENATATE
  49. CEFRIAXONE [Concomitant]
     Active Substance: CEFTRIAXONE
  50. DILTIAZEM. [Concomitant]
     Active Substance: DILTIAZEM
  51. NORVIR [Concomitant]
     Active Substance: RITONAVIR
  52. SERTRALINE [Concomitant]
     Active Substance: SERTRALINE HYDROCHLORIDE
  53. ZOLPIDEM [Concomitant]
     Active Substance: ZOLPIDEM TARTRATE
  54. ATRIPLA [Suspect]
     Active Substance: EFAVIRENZ\EMTRICITABINE\TENOFOVIR DISOPROXIL FUMARATE
     Indication: HIV INFECTION
     Dosage: UNK
     Route: 048
     Dates: start: 2009
  55. ACETAMINOPHEN. [Concomitant]
     Active Substance: ACETAMINOPHEN
  56. AZITHROMYCIN ANHYDROUS. [Concomitant]
     Active Substance: AZITHROMYCIN ANHYDROUS
  57. BENZONATATE. [Concomitant]
     Active Substance: BENZONATATE
  58. CEPHALEXIN AMEL [Concomitant]
     Active Substance: CEPHALEXIN
  59. GABAPENTIN. [Concomitant]
     Active Substance: GABAPENTIN
  60. NYSTATIN. [Concomitant]
     Active Substance: NYSTATIN
  61. OFLOXACIN. [Concomitant]
     Active Substance: OFLOXACIN
  62. PROMETHAZINE [Concomitant]
     Active Substance: PROMETHAZINE HYDROCHLORIDE

REACTIONS (7)
  - Pain [Unknown]
  - Anxiety [Unknown]
  - Emotional distress [Unknown]
  - Hallucination [Unknown]
  - Renal failure [Not Recovered/Not Resolved]
  - Anhedonia [Unknown]
  - Fat redistribution [Unknown]

NARRATIVE: CASE EVENT DATE: 201210
